FAERS Safety Report 6591562-7 (Version None)
Quarter: 2010Q1

REPORT INFORMATION
  Report Type: 
  Country: None (occurrence: None)
  Receive Date: 20100221
  Receipt Date: 20100210
  Transmission Date: 20100710
  Serious: Yes (Life-Threatening)
  Sender: FDA-Public Use
  Company Number: JP-MERCK-1002USA02080

PATIENT
  Age: 79 Year
  Sex: Male

DRUGS (2)
  1. PRIMAXIN [Suspect]
     Indication: PNEUMONIA
     Route: 042
     Dates: start: 20100101
  2. DALACIN [Concomitant]
     Indication: PNEUMONIA
     Route: 065

REACTIONS (1)
  - EOSINOPHILIC PNEUMONIA [None]
